FAERS Safety Report 18710735 (Version 2)
Quarter: 2021Q1

REPORT INFORMATION
  Report Type: Spontaneous
  Country: KR (occurrence: KR)
  Receive Date: 20210107
  Receipt Date: 20210113
  Transmission Date: 20210419
  Serious: Yes (Hospitalization, Other)
  Sender: FDA-Public Use
  Company Number: KR-ORION CORPORATION ORION PHARMA-ENTC2021-0005

PATIENT
  Age: 77 Year
  Sex: Female

DRUGS (1)
  1. LEVODOPA?CARBIDOPA?ENTACAPONE [Suspect]
     Active Substance: CARBIDOPA\ENTACAPONE\LEVODOPA
     Indication: PARKINSON^S DISEASE
     Dosage: STRENGTH: 100/25/200 MG?OVERDOSED WITH 3000/750/6000 MG
     Route: 065

REACTIONS (7)
  - Intentional overdose [Unknown]
  - Yellow skin [Recovered/Resolved]
  - Scleral discolouration [Recovered/Resolved]
  - Stupor [Recovered/Resolved]
  - Suicide attempt [Unknown]
  - Mental status changes [Recovered/Resolved]
  - Chromaturia [Recovered/Resolved]
